FAERS Safety Report 8112625-0 (Version None)
Quarter: 2012Q1

REPORT INFORMATION
  Report Type: 
  Country: None (occurrence: None)
  Receive Date: 20120203
  Receipt Date: 20120124
  Transmission Date: 20120608
  Serious: Yes (Hospitalization)
  Sender: FDA-Public Use
  Company Number: FR-NOVOPROD-340761

PATIENT
  Age: 53 Year
  Sex: Male
  Weight: 86 kg

DRUGS (9)
  1. VICTOZA [Suspect]
     Dosage: 1.8 MG, QD
     Route: 058
     Dates: start: 20110701, end: 20111021
  2. IKOREL [Concomitant]
  3. METFORMIN HCL [Concomitant]
     Dosage: 2 G, QD
     Route: 048
  4. DIAMICRON [Concomitant]
     Dosage: ONE DOSE
     Route: 048
  5. VICTOZA [Suspect]
     Indication: TYPE 2 DIABETES MELLITUS
     Dosage: 0.6 MG, QD
     Route: 058
     Dates: start: 20110101
  6. ALTEISDUO [Concomitant]
  7. PLAVIX [Concomitant]
  8. LESCOL [Concomitant]
  9. OMACOR [Concomitant]

REACTIONS (1)
  - LIPASE INCREASED [None]
